FAERS Safety Report 25186215 (Version 4)
Quarter: 2025Q3

REPORT INFORMATION
  Report Type: Spontaneous
  Country: EU (occurrence: EU)
  Receive Date: 20250410
  Receipt Date: 20250709
  Transmission Date: 20251021
  Serious: Yes (Other)
  Sender: BRISTOL-MYERS SQUIBB COMPANY
  Company Number: EU-BRISTOL-MYERS SQUIBB COMPANY-2024-182780

PATIENT
  Age: 81 Year
  Sex: Female
  Weight: 55 kg

DRUGS (2)
  1. OPDIVO [Suspect]
     Active Substance: NIVOLUMAB
     Indication: Pleural mesothelioma malignant
     Dosage: 36 DOSES BEFORE DISCONTINUATION
     Route: 042
     Dates: start: 20220912, end: 20241126
  2. YERVOY [Suspect]
     Active Substance: IPILIMUMAB
     Indication: Pleural mesothelioma malignant
     Dosage: 19 DOSES BEFORE DISCONTINUATION
     Route: 042
     Dates: start: 20220912, end: 20241126

REACTIONS (5)
  - Breast cancer [Unknown]
  - Polymyalgia rheumatica [Unknown]
  - Therapy interrupted [Unknown]
  - Cholangitis [Unknown]
  - General physical health deterioration [Unknown]
